FAERS Safety Report 16719762 (Version 5)
Quarter: 2020Q1

REPORT INFORMATION
  Report Type: Spontaneous
  Country: US (occurrence: US)
  Receive Date: 20190820
  Receipt Date: 20200206
  Transmission Date: 20200409
  Serious: Yes (Other)
  Sender: FDA-Public Use
  Company Number: US-PFIZER INC-2018153002

PATIENT
  Age: 79 Year
  Sex: Male

DRUGS (3)
  1. LYRICA [Suspect]
     Active Substance: PREGABALIN
     Indication: BACK PAIN
     Dosage: 50 MG, 1X/DAY(1 CAPSULE ONCE DAILY AT BEDTIME)
     Route: 048
  2. LYRICA [Suspect]
     Active Substance: PREGABALIN
     Indication: PERTHES DISEASE
     Dosage: 150 MG, DAILY (TAKE ONE 150MG EACH DAY)
  3. LYRICA [Suspect]
     Active Substance: PREGABALIN
     Indication: SPINAL DISORDER
     Dosage: 50 MG, 1X/DAY

REACTIONS (12)
  - Musculoskeletal pain [Unknown]
  - Chest pain [Unknown]
  - Limb discomfort [Unknown]
  - Neck pain [Unknown]
  - Cardiac failure congestive [Unknown]
  - Peripheral swelling [Unknown]
  - Wheezing [Unknown]
  - Joint swelling [Unknown]
  - Abdominal distension [Unknown]
  - Gastrointestinal disorder [Unknown]
  - Gait disturbance [Unknown]
  - Oesophageal disorder [Unknown]
